FAERS Safety Report 15985487 (Version 2)
Quarter: 2019Q4

REPORT INFORMATION
  Report Type: Spontaneous
  Country: GB (occurrence: GB)
  Receive Date: 20190220
  Receipt Date: 20191211
  Transmission Date: 20200122
  Serious: Yes (Other)
  Sender: FDA-Public Use
  Company Number: GB-HQ SPECIALTY-GB-2019INT000048

PATIENT

DRUGS (5)
  1. CISPLATIN. [Suspect]
     Active Substance: CISPLATIN
     Indication: NON-SMALL CELL LUNG CANCER
     Dosage: 20 MG/M2, (WITH FRACTIONS 1-4 AND 16-19)
     Route: 042
  2. VINORELBINE [Suspect]
     Active Substance: VINORELBINE TARTRATE
     Dosage: 25 MG/M2, (DAYS 1 AND 8, PLANNED)
     Route: 042
  3. CISPLATIN. [Suspect]
     Active Substance: CISPLATIN
     Dosage: 80 MG/M2, (DAY 1, PLANNED)
     Route: 042
  4. VINORELBINE [Suspect]
     Active Substance: VINORELBINE TARTRATE
     Indication: NON-SMALL CELL LUNG CANCER
     Dosage: 15 MG/M2, (ON THE DAY OF FRACTIONS 1, 6, 15 AND 20)
     Route: 042
  5. RADIOTHERAPY [Suspect]
     Active Substance: RADIATION THERAPY
     Indication: NON-SMALL CELL LUNG CANCER
     Dosage: 55 GY IN 20 DAILY FRACTIONS OF 2.75 GY PER FRACTION OVER 4 WEEKS

REACTIONS (1)
  - Sepsis [Unknown]
